FAERS Safety Report 13934188 (Version 2)
Quarter: 2017Q3

REPORT INFORMATION
  Report Type: Spontaneous
  Country: US (occurrence: US)
  Receive Date: 20170905
  Receipt Date: 20170913
  Transmission Date: 20171127
  Serious: Yes (Hospitalization)
  Sender: FDA-Public Use
  Company Number: US-ROCHE-1986527

PATIENT
  Age: 7 Year
  Sex: Male
  Weight: 35.2 kg

DRUGS (4)
  1. ZELBORAF [Suspect]
     Active Substance: VEMURAFENIB
     Indication: ASTROCYTOMA
     Dosage: 1 TABLET AM AND 2 TABLETS PM
     Route: 048
     Dates: start: 20160721
  2. ZELBORAF [Suspect]
     Active Substance: VEMURAFENIB
     Route: 048
     Dates: start: 20170802
  3. ZELBORAF [Suspect]
     Active Substance: VEMURAFENIB
     Dosage: 1 TABLET AM AND 2 TABLETS PM
     Route: 048
     Dates: start: 20160726
  4. MEKINIST [Concomitant]
     Active Substance: TRAMETINIB DIMETHYL SULFOXIDE

REACTIONS (7)
  - Dehydration [Recovered/Resolved]
  - Somnolence [Recovered/Resolved]
  - Visual impairment [Unknown]
  - Headache [Recovered/Resolved]
  - Nausea [Recovered/Resolved]
  - Vomiting [Recovered/Resolved]
  - Stomatitis [Recovered/Resolved]

NARRATIVE: CASE EVENT DATE: 20170730
